FAERS Safety Report 8927112 (Version 1)
Quarter: 2012Q4

REPORT INFORMATION
  Report Type: 
  Country: CN (occurrence: CN)
  Receive Date: 20121127
  Receipt Date: 20121127
  Transmission Date: 20130627
  Serious: Yes (Other)
  Sender: FDA-Public Use
  Company Number: CN-009507513-1211CHN009722

PATIENT
  Age: 48 Year
  Sex: Male
  Weight: 58 kg

DRUGS (2)
  1. CLARITYNE [Suspect]
     Indication: ALLERGY TO FERMENTED PRODUCTS
     Dosage: 10 mg, qd
     Route: 048
     Dates: start: 20110831, end: 20110903
  2. PREDNISONE [Concomitant]
     Indication: ALLERGY TO FERMENTED PRODUCTS
     Dosage: UNK, Unknown
     Route: 048
     Dates: start: 20110831, end: 20110901

REACTIONS (3)
  - Vision blurred [Recovered/Resolved]
  - Fatigue [Recovered/Resolved]
  - Somnolence [Recovered/Resolved]
